FAERS Safety Report 4511879-7 (Version None)
Quarter: 2004Q4

REPORT INFORMATION
  Report Type: 
  Country: None (occurrence: None)
  Receive Date: 20041129
  Receipt Date: 20041117
  Transmission Date: 20050328
  Serious: Yes (Other)
  Sender: FDA-Public Use
  Company Number: FR-JNJFOC-20040903197

PATIENT
  Sex: Male

DRUGS (5)
  1. RISPERDAL [Suspect]
     Route: 049
  2. RISPERDAL [Suspect]
     Route: 049
  3. NEURONTIN [Concomitant]
  4. TEGRETOL [Concomitant]
  5. DITROPAN [Concomitant]
     Dosage: 1/2 TABLET

REACTIONS (4)
  - DEPRESSED LEVEL OF CONSCIOUSNESS [None]
  - DIABETES INSIPIDUS [None]
  - POLYDIPSIA [None]
  - POLYURIA [None]
